FAERS Safety Report 16763919 (Version 2)
Quarter: 2019Q4

REPORT INFORMATION
  Report Type: Spontaneous
  Country: FR (occurrence: FR)
  Receive Date: 20190902
  Receipt Date: 20191009
  Transmission Date: 20200122
  Serious: Yes (Death, Congenital Anomaly)
  Sender: FDA-Public Use
  Company Number: FR-TAKEDA-2019TUS050367

PATIENT
  Sex: Female

DRUGS (1)
  1. ENTYVIO [Suspect]
     Active Substance: VEDOLIZUMAB
     Indication: COLITIS ULCERATIVE
     Dosage: 300 MILLIGRAM
     Route: 064
     Dates: start: 20180927, end: 20190221

REACTIONS (3)
  - Amniotic fluid volume decreased [Fatal]
  - Foetal growth restriction [Fatal]
  - Congenital anomaly [Fatal]

NARRATIVE: CASE EVENT DATE: 201904
